FAERS Safety Report 21780051 (Version 3)
Quarter: 2023Q1

REPORT INFORMATION
  Report Type: Report from Study
  Country: US (occurrence: US)
  Receive Date: 20221226
  Receipt Date: 20230112
  Transmission Date: 20230417
  Serious: No
  Sender: FDA-Public Use
  Company Number: US-ABBVIE-4250529

PATIENT
  Sex: Male

DRUGS (29)
  1. VENCLEXTA [Suspect]
     Active Substance: VENETOCLAX
     Indication: Plasma cell myeloma in remission
     Dosage: DOSE:400 MG, DAY1-14 LINE OF THERAPY: THIRD OR GREATER, 4TH LINE
     Route: 048
  2. VENCLEXTA [Suspect]
     Active Substance: VENETOCLAX
     Indication: Plasma cell myeloma in remission
     Route: 048
  3. ACETAMINOPHEN\HYDROCODONE [Concomitant]
     Active Substance: ACETAMINOPHEN\HYDROCODONE
     Indication: Pain
     Dosage: 10-325MG TABLET
     Route: 048
  4. Ninlaro 3 Milligram [Concomitant]
     Indication: Product used for unknown indication
     Route: 048
  5. Xanax 0.5 Milligram [Concomitant]
     Indication: Anxiety
     Dosage: TIME INTERVAL: 0.33333333 DAYS
     Route: 048
  6. ONDANSETRON [Concomitant]
     Active Substance: ONDANSETRON
     Indication: Product used for unknown indication
     Dosage: DISINTEGRATING TABLET, AS NEEDED
     Route: 048
  7. Triamcinolone 0.1 Percent [Concomitant]
     Indication: Product used for unknown indication
     Dosage: 1 APPLICATION TOPICALLY 2 TIMES A DAY
     Route: 061
  8. AMBIEN [Concomitant]
     Active Substance: ZOLPIDEM TARTRATE
     Indication: Sleep disorder
     Dosage: ONCE DAILY AT BEDTIME
     Route: 048
  9. LOMOTIL [Concomitant]
     Active Substance: ATROPINE SULFATE\DIPHENOXYLATE HYDROCHLORIDE
     Indication: Diarrhoea
     Dosage: 2.5-0.025MG TABLET
     Route: 048
  10. LOMOTIL [Concomitant]
     Active Substance: ATROPINE SULFATE\DIPHENOXYLATE HYDROCHLORIDE
     Indication: Diarrhoea
     Dosage: 2.5-0.025MG TABLET, : 1 TABLET EVERY 4-6 HOURS
     Route: 048
  11. LOMOTIL [Concomitant]
     Active Substance: ATROPINE SULFATE\DIPHENOXYLATE HYDROCHLORIDE
     Indication: Diarrhoea
     Dosage: 2.5-0.025MG TABLET
     Route: 048
  12. Valacyclovir 500 Milligram [Concomitant]
     Indication: Product used for unknown indication
     Dosage: TAKE 1 TABLET
     Route: 048
  13. Welchol 625 Milligram [Concomitant]
     Indication: Product used for unknown indication
     Route: 048
  14. RESTORIL [Concomitant]
     Active Substance: TEMAZEPAM
     Indication: Insomnia
     Route: 048
  15. ZOMETA [Concomitant]
     Active Substance: ZOLEDRONIC ACID
     Indication: Product used for unknown indication
     Dosage: MIX IN 250 ML NS INFUSE OVER NOT LESS THAN 15 MIN
     Route: 042
  16. ZOMETA [Concomitant]
     Active Substance: ZOLEDRONIC ACID
     Indication: Product used for unknown indication
     Dosage: MIX IN 250 ML NS INFUSE OVER NOT LESS THAN 15 MIN, 4 MG ONCE IN 28 DAYS
     Route: 042
  17. ZOMETA [Concomitant]
     Active Substance: ZOLEDRONIC ACID
     Indication: Product used for unknown indication
     Dosage: MIX IN 250 ML NS INFUSE OVER NOT LESS THAN 15 MIN
     Route: 042
  18. Phentermine-Topiramate [Concomitant]
     Indication: Product used for unknown indication
     Dosage: 3.75-23MG 24 HR ER CAPSULE
     Route: 048
  19. Prochlorperazine 10 Milligram [Concomitant]
     Indication: Nausea
     Route: 048
  20. METFORMIN [Concomitant]
     Active Substance: METFORMIN HYDROCHLORIDE
     Indication: Product used for unknown indication
     Dosage: PO D 4 IN AM
     Route: 048
  21. METFORMIN [Concomitant]
     Active Substance: METFORMIN HYDROCHLORIDE
     Indication: Product used for unknown indication
     Dosage: PO D 4 IN AM
     Route: 048
  22. METFORMIN [Concomitant]
     Active Substance: METFORMIN HYDROCHLORIDE
     Indication: Product used for unknown indication
     Dosage: PO D 4 IN AM
     Route: 048
  23. SOLIQUA 100/33 [Concomitant]
     Active Substance: INSULIN GLARGINE\LIXISENATIDE
     Indication: Product used for unknown indication
     Dosage: 100UNIT -33MCG/ML, EVERY MORNING
     Route: 058
  24. DEXAMETHASONE [Concomitant]
     Active Substance: DEXAMETHASONE
     Indication: Product used for unknown indication
     Dosage: 4 MG TABLET DOSE20 MG, TAKE 20 MG WEEKLY ON DAYS 1,8, 15,22
     Route: 048
  25. CLARITIN [Concomitant]
     Active Substance: LORATADINE
     Indication: Product used for unknown indication
     Route: 048
  26. ASPIRIN [Concomitant]
     Active Substance: ASPIRIN
     Indication: Product used for unknown indication
     Dosage: 325MG DELAYED RELEASE ENTERIC COATED TABLET
     Route: 048
  27. CYCLOBENZAPRINE [Concomitant]
     Active Substance: CYCLOBENZAPRINE
     Indication: Muscle spasms
     Dosage: 1 TABLET
     Route: 048
  28. ANTARA [Concomitant]
     Active Substance: FENOFIBRATE
     Indication: Product used for unknown indication
     Dosage: 1 CAPSULE AS DIRECTED
  29. Omega 3 Fatty acid 1000 Milligram [Concomitant]
     Indication: Product used for unknown indication
     Route: 048

REACTIONS (2)
  - Off label use [Unknown]
  - Off label use [Unknown]
